FAERS Safety Report 5060657-1 (Version None)
Quarter: 2006Q3

REPORT INFORMATION
  Report Type: 
  Country: None (occurrence: None)
  Receive Date: 20060719
  Receipt Date: 20060719
  Transmission Date: 20061208
  Serious: Yes (Other)
  Sender: FDA-Public Use
  Company Number: None

PATIENT
  Age: 50 Year
  Sex: Female

DRUGS (1)
  1. REMICADE [Suspect]
     Indication: RHEUMATOID ARTHRITIS
     Dosage: 3 MG/KG Q8WKS IV
     Route: 042
     Dates: start: 20020301, end: 20060301

REACTIONS (3)
  - CONDITION AGGRAVATED [None]
  - DERMATITIS PSORIASIFORM [None]
  - RHEUMATOID ARTHRITIS [None]
